FAERS Safety Report 11585580 (Version 1)
Quarter: 2015Q4

REPORT INFORMATION
  Report Type: Spontaneous
  Country: FR (occurrence: FR)
  Receive Date: 20151001
  Receipt Date: 20151001
  Transmission Date: 20160304
  Serious: Yes (Life-Threatening)
  Sender: FDA-Public Use
  Company Number: FR-JNJFOC-20150806612

PATIENT
  Age: 47 Year
  Sex: Male
  Weight: 79 kg

DRUGS (3)
  1. CORTANCYL [Concomitant]
     Active Substance: PREDNISONE
     Indication: SARCOIDOSIS
     Route: 065
     Dates: start: 200006
  2. INFLIXIMAB, RECOMBINANT [Suspect]
     Active Substance: INFLIXIMAB
     Indication: SARCOIDOSIS
     Dosage: 3 OR 5 MG EVERY 0,2,6 AND THEN  EVERY 8 WEEKS
     Route: 042
     Dates: start: 20051215, end: 20060601
  3. METHOTREXATE [Concomitant]
     Active Substance: METHOTREXATE
     Indication: SARCOIDOSIS
     Route: 065
     Dates: start: 200402, end: 200601

REACTIONS (3)
  - Product use issue [Unknown]
  - Cryptococcosis [Recovered/Resolved]
  - Therapeutic response unexpected [Unknown]

NARRATIVE: CASE EVENT DATE: 200601
